FAERS Safety Report 4429626-6 (Version None)
Quarter: 2004Q3

REPORT INFORMATION
  Report Type: 
  Country: None (occurrence: None)
  Receive Date: 20040819
  Receipt Date: 20040805
  Transmission Date: 20050211
  Serious: Yes (Other)
  Sender: FDA-Public Use
  Company Number: A-US2003-01999

PATIENT
  Age: 48 Year
  Sex: Female
  Weight: 56.2 kg

DRUGS (13)
  1. TRACLEER [Suspect]
     Indication: PULMONARY HYPERTENSION
     Dosage: SEE IMAGE
     Dates: start: 20020706, end: 20020830
  2. TRACLEER [Suspect]
     Indication: PULMONARY HYPERTENSION
     Dosage: SEE IMAGE
     Dates: start: 20020830, end: 20030107
  3. TRACLEER [Suspect]
     Indication: PULMONARY HYPERTENSION
     Dosage: SEE IMAGE
     Dates: start: 20030107, end: 20030115
  4. TRACLEER [Suspect]
     Indication: PULMONARY HYPERTENSION
     Dosage: SEE IMAGE
     Dates: start: 20040515, end: 20040527
  5. REMODULIN [Concomitant]
  6. ZOLOFT [Concomitant]
  7. PREMPRO [Concomitant]
  8. FOSAMAX [Concomitant]
  9. COUMADIN [Concomitant]
  10. FUROSEMIDE [Concomitant]
  11. NEURONTIN [Concomitant]
  12. LASIX [Concomitant]
  13. K-DUR 10 [Concomitant]

REACTIONS (4)
  - ALANINE AMINOTRANSFERASE INCREASED [None]
  - ASPARTATE AMINOTRANSFERASE INCREASED [None]
  - CONDITION AGGRAVATED [None]
  - PULMONARY HYPERTENSION [None]
